FAERS Safety Report 7198448-8 (Version None)
Quarter: 2010Q4

REPORT INFORMATION
  Report Type: 
  Country: None (occurrence: None)
  Receive Date: 20101223
  Receipt Date: 20101223
  Transmission Date: 20110411
  Serious: No
  Sender: FDA-Public Use
  Company Number: None

PATIENT
  Age: 51 Year
  Sex: Male

DRUGS (1)
  1. CELEBREX [Suspect]
     Dosage: TAKE 1 CAPSULE TWICE DAILY

REACTIONS (4)
  - HAEMORRHAGE [None]
  - JOINT STIFFNESS [None]
  - JOINT SWELLING [None]
  - PRODUCT QUALITY ISSUE [None]
